FAERS Safety Report 25466884 (Version 1)
Quarter: 2025Q2

REPORT INFORMATION
  Report Type: Spontaneous
  Country: CA (occurrence: CA)
  Receive Date: 20250623
  Receipt Date: 20250623
  Transmission Date: 20250717
  Serious: Yes (Hospitalization, Other)
  Sender: SANOFI AVENTIS
  Company Number: CA-BoehringerIngelheim-2025-BI-077153

PATIENT
  Age: 79 Year
  Sex: Male

DRUGS (14)
  1. FLOMAX [Suspect]
     Active Substance: TAMSULOSIN HYDROCHLORIDE
     Indication: Dysuria
     Dosage: 0.8 MG, QD
     Route: 048
     Dates: start: 20240626
  2. FLOMAX [Suspect]
     Active Substance: TAMSULOSIN HYDROCHLORIDE
     Route: 048
  3. VALSARTAN [Suspect]
     Active Substance: VALSARTAN
     Indication: Product used for unknown indication
     Route: 048
     Dates: start: 20241101
  4. VALSARTAN [Suspect]
     Active Substance: VALSARTAN
     Route: 048
     Dates: start: 2025
  5. GOSERELIN [Suspect]
     Active Substance: GOSERELIN
     Indication: Product used for unknown indication
     Dosage: Q12 WEEKS
     Route: 058
     Dates: start: 20241113
  6. GOSERELIN [Suspect]
     Active Substance: GOSERELIN
     Dosage: 10.8 MG, Q12W
     Route: 058
     Dates: start: 20250219
  7. GOSERELIN [Suspect]
     Active Substance: GOSERELIN
     Dosage: 10.8 MG, Q12W
     Route: 058
     Dates: start: 20250522
  8. GOSERELIN [Suspect]
     Active Substance: GOSERELIN
  9. GOSERELIN [Suspect]
     Active Substance: GOSERELIN
     Dosage: 10.8 MG, Q12W
     Route: 058
     Dates: start: 20240430
  10. VITAMIN B12 [Concomitant]
     Active Substance: CYANOCOBALAMIN
     Indication: Product used for unknown indication
     Route: 065
  11. TRAZODONE HYDROCHLORIDE [Concomitant]
     Active Substance: TRAZODONE HYDROCHLORIDE
     Indication: Product used for unknown indication
     Route: 065
  12. Camu [Concomitant]
     Indication: Product used for unknown indication
     Route: 065
  13. CALCIUM CARBONATE [Concomitant]
     Active Substance: CALCIUM CARBONATE
     Indication: Product used for unknown indication
     Route: 065
  14. BICALUTAMIDE [Concomitant]
     Active Substance: BICALUTAMIDE
     Indication: Product used for unknown indication
     Route: 065
     Dates: start: 20240419

REACTIONS (7)
  - Hypotension [Not Recovered/Not Resolved]
  - Syncope [Recovering/Resolving]
  - Haemoglobin decreased [Not Recovered/Not Resolved]
  - Haemochromatosis [Not Recovered/Not Resolved]
  - Pallor [Recovering/Resolving]
  - Asthenia [Recovering/Resolving]
  - Hypertension [Unknown]

NARRATIVE: CASE EVENT DATE: 20241017
